FAERS Safety Report 24284428 (Version 1)
Quarter: 2024Q3

REPORT INFORMATION
  Report Type: Spontaneous
  Country: US (occurrence: US)
  Receive Date: 20240905
  Receipt Date: 20240905
  Transmission Date: 20241016
  Serious: No
  Sender: ALKEM
  Company Number: US-ALKEM LABORATORIES LIMITED-US-ALKEM-2024-15805

PATIENT
  Age: 37 Year
  Sex: Female

DRUGS (19)
  1. TRIAMCINOLONE ACETONIDE [Suspect]
     Active Substance: TRIAMCINOLONE ACETONIDE
     Indication: Cystoid macular oedema
     Dosage: 2 MILLIGRAM (INJECTED) (IVT)
  2. TRIAMCINOLONE ACETONIDE [Suspect]
     Active Substance: TRIAMCINOLONE ACETONIDE
     Indication: Eye inflammation
     Dosage: UNK
  3. TRIAMCINOLONE ACETONIDE [Suspect]
     Active Substance: TRIAMCINOLONE ACETONIDE
     Indication: Uveitis
     Dosage: UNK (POSTERIOR SUB-TENON)
     Route: 031
  4. VANCOMYCIN [Suspect]
     Active Substance: VANCOMYCIN
     Indication: Endophthalmitis
     Dosage: UNK (FIRST TAP)
     Route: 065
  5. VANCOMYCIN [Suspect]
     Active Substance: VANCOMYCIN
     Dosage: UNK (SECOND TAP)
     Route: 065
  6. VANCOMYCIN [Suspect]
     Active Substance: VANCOMYCIN
     Dosage: UNK (INJECTED)
  7. ADALIMUMAB [Suspect]
     Active Substance: ADALIMUMAB
     Indication: Uveitis
     Dosage: 40 MILLIGRAM, ONCE IN 2 WEEKS, INJECTION
     Route: 058
  8. ADALIMUMAB [Suspect]
     Active Substance: ADALIMUMAB
     Dosage: UNK, ONCE WEEKLY (INJECTION)
     Route: 065
  9. CEFTAZIDIME [Suspect]
     Active Substance: CEFTAZIDIME
     Indication: Endophthalmitis
     Dosage: UNK (FIRST TAP)
     Route: 065
  10. CEFTAZIDIME [Suspect]
     Active Substance: CEFTAZIDIME
     Dosage: UNK (SECOND TAP)
     Route: 065
  11. CEFTAZIDIME [Suspect]
     Active Substance: CEFTAZIDIME
     Dosage: UNK (INJECTED)
  12. METHOTREXATE [Suspect]
     Active Substance: METHOTREXATE
     Indication: Endophthalmitis
     Dosage: UNK (0.4 MILLIGRAM PER 0.1 MILLILITER) (MONTHLY) (IN THE RIGHT EYE)
  13. METHOTREXATE [Suspect]
     Active Substance: METHOTREXATE
     Dosage: UNK (EIGHT MONTHLY INJECTIONS IN THE RIGHT EYE)
     Route: 065
  14. METHOTREXATE [Suspect]
     Active Substance: METHOTREXATE
     Dosage: UNK (FOURTH INJECTION)
     Route: 065
  15. METHOTREXATE [Suspect]
     Active Substance: METHOTREXATE
     Dosage: UNK (INJECTION)
     Route: 065
  16. PREDNISOLONE ACETATE [Suspect]
     Active Substance: PREDNISOLONE ACETATE
     Indication: Uveitis
     Dosage: UNK (EVERY 2 HOURS) (DROPS) (WHILE AWA)KE
     Route: 065
  17. VORICONAZOLE [Suspect]
     Active Substance: VORICONAZOLE
     Indication: Endophthalmitis
     Dosage: UNK (FIRST TAP)
     Route: 065
  18. VORICONAZOLE [Suspect]
     Active Substance: VORICONAZOLE
     Dosage: UNK (SECOND TAP)
     Route: 065
  19. VORICONAZOLE [Suspect]
     Active Substance: VORICONAZOLE
     Dosage: UNK (INJECTED)

REACTIONS (4)
  - Retinal neoplasm [Recovered/Resolved]
  - Therapy non-responder [Unknown]
  - Therapy partial responder [Unknown]
  - Exposure during pregnancy [Unknown]
